FAERS Safety Report 16888533 (Version 1)
Quarter: 2019Q4

REPORT INFORMATION
  Report Type: Spontaneous
  Country: US (occurrence: US)
  Receive Date: 20191007
  Receipt Date: 20191007
  Transmission Date: 20200122
  Serious: Yes (Death, Other)
  Sender: FDA-Public Use
  Company Number: US-SUN PHARMACEUTICAL INDUSTRIES LTD-2019R1-222156

PATIENT
  Age: 21 Year
  Sex: Male

DRUGS (1)
  1. PREDNISONE. [Suspect]
     Active Substance: PREDNISONE
     Indication: RETINAL PIGMENT EPITHELIOPATHY
     Dosage: 80 MILLIGRAM, DAILY
     Route: 065

REACTIONS (4)
  - Brain herniation [Fatal]
  - Mental status changes [Unknown]
  - Cerebrovascular accident [Fatal]
  - Brain oedema [Fatal]
